FAERS Safety Report 7267899-5 (Version None)
Quarter: 2011Q1

REPORT INFORMATION
  Report Type: 
  Country: None (occurrence: None)
  Receive Date: 20110201
  Receipt Date: 20110127
  Transmission Date: 20110831
  Serious: Yes (Other)
  Sender: FDA-Public Use
  Company Number: GB-ABBOTT-11P-167-0695500-00

PATIENT
  Sex: Female
  Weight: 66 kg

DRUGS (5)
  1. CITALOPRAM [Concomitant]
     Indication: CROHN'S DISEASE
     Route: 048
  2. AZATHIOPRINE [Concomitant]
     Indication: CROHN'S DISEASE
     Route: 048
     Dates: end: 20101221
  3. INHALERS [Concomitant]
     Indication: ASTHMA
  4. HUMIRA [Suspect]
     Indication: CROHN'S DISEASE
     Route: 058
     Dates: start: 20101008, end: 20101221
  5. MEZAVANT [Concomitant]
     Indication: CROHN'S DISEASE
     Route: 048

REACTIONS (2)
  - WHITE BLOOD CELL COUNT DECREASED [None]
  - NEUTROPHIL COUNT DECREASED [None]
